FAERS Safety Report 6344445-1 (Version None)
Quarter: 2009Q3

REPORT INFORMATION
  Report Type: 
  Country: None (occurrence: None)
  Receive Date: 20090908
  Receipt Date: 20090826
  Transmission Date: 20100115
  Serious: Yes (Other)
  Sender: FDA-Public Use
  Company Number: US-ELI_LILLY_AND_COMPANY-US200908005793

PATIENT
  Age: 59 Year
  Sex: Female
  Weight: 63.946 kg

DRUGS (3)
  1. EFFIENT [Suspect]
     Dosage: 10 MG, UNK
     Dates: start: 20090812, end: 20090801
  2. MAXZIDE [Concomitant]
     Dosage: UNK, AS NEEDED
  3. ATENOL [Concomitant]
     Dosage: 25 MG, DAILY (1/D)

REACTIONS (5)
  - CONTUSION [None]
  - EYE HAEMORRHAGE [None]
  - INTENTIONAL DRUG MISUSE [None]
  - MEDICATION ERROR [None]
  - SWELLING FACE [None]
